FAERS Safety Report 23132624 (Version 1)
Quarter: 2023Q4

REPORT INFORMATION
  Report Type: Spontaneous
  Country: CH (occurrence: CH)
  Receive Date: 20231101
  Receipt Date: 20231101
  Transmission Date: 20240110
  Serious: Yes (Hospitalization)
  Sender: FDA-Public Use
  Company Number: None

PATIENT
  Age: 77 Year
  Sex: Female
  Weight: 80 kg

DRUGS (2)
  1. PROLIA [Suspect]
     Active Substance: DENOSUMAB
     Indication: Osteoporosis
     Dosage: 60 MILLIGRAM, Q6MO
     Route: 058
     Dates: start: 2015, end: 202209
  2. KENACORT [Concomitant]
     Active Substance: TRIAMCINOLONE
     Indication: Facet joint syndrome
     Dosage: 60 MILLIGRAM
     Route: 014
     Dates: start: 20230608, end: 20230608

REACTIONS (3)
  - Lumbar vertebral fracture [Recovered/Resolved]
  - Thoracic vertebral fracture [Recovered/Resolved]
  - Rebound effect [Recovered/Resolved]

NARRATIVE: CASE EVENT DATE: 20230619
